FAERS Safety Report 4330554-5 (Version None)
Quarter: 2004Q1

REPORT INFORMATION
  Report Type: 
  Country: None (occurrence: None)
  Receive Date: 20040329
  Receipt Date: 20040315
  Transmission Date: 20041129
  Serious: Yes (Other)
  Sender: FDA-Public Use
  Company Number: 2004017852

PATIENT
  Age: 14 Year
  Sex: Female
  Weight: 43.0917 kg

DRUGS (2)
  1. GEODON [Suspect]
     Indication: BIPOLAR DISORDER
     Dosage: 80 MG (BID), ORAL
     Route: 048
     Dates: start: 20040313, end: 20040313
  2. METHYLPHENIDATE HCL [Concomitant]

REACTIONS (1)
  - ANAPHYLACTIC REACTION [None]
